FAERS Safety Report 21757775 (Version 1)
Quarter: 2022Q4

REPORT INFORMATION
  Report Type: Spontaneous
  Country: US (occurrence: None)
  Receive Date: 20221221
  Receipt Date: 20221221
  Transmission Date: 20230112
  Serious: No
  Sender: FDA-Public Use
  Company Number: US-ROCHE-2818379

PATIENT
  Age: 77 Year
  Sex: Male
  Weight: 105.1 kg

DRUGS (1)
  1. ACTIVASE [Suspect]
     Active Substance: ALTEPLASE
     Indication: Deep vein thrombosis
     Dosage: RUNNING AT 0.5 MG PER HOUR
     Route: 065
     Dates: start: 20210422

REACTIONS (2)
  - Off label use [Unknown]
  - No adverse event [Unknown]

NARRATIVE: CASE EVENT DATE: 20210422
